FAERS Safety Report 12916630 (Version 1)
Quarter: 2016Q4

REPORT INFORMATION
  Report Type: Spontaneous
  Country: US (occurrence: US)
  Receive Date: 20161107
  Receipt Date: 20161107
  Transmission Date: 20170207
  Serious: No
  Sender: FDA-Public Use
  Company Number: US-B.I. PHARMACEUTICALS,INC./RIDGEFIELD-2016-BI-071077

PATIENT
  Age: 74 Year
  Sex: Male

DRUGS (8)
  1. TOPROL XL [Concomitant]
     Active Substance: METOPROLOL SUCCINATE
     Indication: PRODUCT USED FOR UNKNOWN INDICATION
     Dosage: 1 TABLET DAILY;  FORM STRENGTH: 25 MG; FORMULATION: TABLET
     Route: 048
  2. TAMSOLUSIN [Concomitant]
     Indication: PRODUCT USED FOR UNKNOWN INDICATION
     Dosage: 1 CAPSULE DAILY;  FORM STRENGTH: 0.4 MG; FORMULATION: CAPSULE
     Route: 048
  3. MELATONIN [Concomitant]
     Active Substance: MELATONIN
     Indication: PRODUCT USED FOR UNKNOWN INDICATION
     Dosage: 2 TABLETS AT BEDTIME;  FORM STRENGTH: 3 MG; FORMULATION: TABLET
     Route: 048
  4. OCUVITE [Concomitant]
     Active Substance: VITAMINS
     Indication: PRODUCT USED FOR UNKNOWN INDICATION
     Dosage: 2 TABLETS DAILY;  FORMULATION: TABLET;
     Route: 048
  5. LISINOPRIL. [Concomitant]
     Active Substance: LISINOPRIL
     Indication: HYPERTENSION
     Dosage: 1 TABLET DAILY;  FORM STRENGTH: 5 MG; FORMULATION: TABLET
     Route: 048
  6. ADVIL PM [Concomitant]
     Active Substance: DIPHENHYDRAMINE CITRATE\IBUPROFEN
     Indication: PRODUCT USED FOR UNKNOWN INDICATION
     Dosage: 2 TABLETS AT BEDTIME AS NEEDED;  FORMULATION: TABLET;
     Route: 048
  7. PRADAXA [Suspect]
     Active Substance: DABIGATRAN ETEXILATE MESYLATE
     Indication: ATRIAL FIBRILLATION
  8. HYDROXYZINE HYDROCHLORIDE. [Concomitant]
     Active Substance: HYDROXYZINE HYDROCHLORIDE
     Indication: PRODUCT USED FOR UNKNOWN INDICATION
     Dosage: 1-2 TABLETS EVERY 6 HOURS AS NEEDED;  FORM STRENGTH: 25 MG; FORMULATION: TABLET
     Route: 048

REACTIONS (1)
  - Activated partial thromboplastin time prolonged [Unknown]

NARRATIVE: CASE EVENT DATE: 20161024
